FAERS Safety Report 10982903 (Version 1)
Quarter: 2015Q1

REPORT INFORMATION
  Report Type: Spontaneous
  Country: AU (occurrence: None)
  Receive Date: 20150302
  Receipt Date: 20150302
  Transmission Date: 20150721
  Serious: Yes (Hospitalization)
  Sender: FDA-Public Use
  Company Number: 2014SYM00135

PATIENT
  Age: 52 Year
  Sex: Male

DRUGS (9)
  1. ACEON [Suspect]
     Active Substance: PERINDOPRIL ERBUMINE
     Indication: PRODUCT USED FOR UNKNOWN INDICATION
     Route: 048
     Dates: end: 20140524
  2. CLONAZEPAM. [Concomitant]
     Active Substance: CLONAZEPAM
  3. VALPROATE SODIUM. [Concomitant]
     Active Substance: VALPROATE SODIUM
  4. AMLODIPINE BESILATE, ATORVASTATIN CALCIUM (AMLODIPINE BESILATE W/ ATORVASTATIN CALCIUM) [Concomitant]
  5. ACETYLSALICYLIC ACID [Concomitant]
     Active Substance: ASPIRIN
  6. METFORMIN HYDROCHLORIDE. [Concomitant]
     Active Substance: METFORMIN HYDROCHLORIDE
  7. SALBUTAMOL [Concomitant]
     Active Substance: ALBUTEROL
  8. CLOMIPRAMINE HYDROCHLORIDE. [Concomitant]
     Active Substance: CLOMIPRAMINE HYDROCHLORIDE
  9. FLOUXETINE HYDROCHLORIDE (FLOUXETINE HYDROCHLORIDE ) [Concomitant]

REACTIONS (1)
  - Angioedema [None]

NARRATIVE: CASE EVENT DATE: 20140524
